FAERS Safety Report 14011262 (Version 1)
Quarter: 2017Q3

REPORT INFORMATION
  Report Type: Spontaneous
  Country: US (occurrence: None)
  Receive Date: 20170926
  Receipt Date: 20170926
  Transmission Date: 20171128
  Serious: Yes (Other)
  Sender: FDA-Public Use
  Company Number: None

PATIENT
  Age: 70 Year
  Sex: Male
  Weight: 130 kg

DRUGS (1)
  1. XGEVA [Suspect]
     Active Substance: DENOSUMAB

REACTIONS (1)
  - Hypocalcaemia [None]

NARRATIVE: CASE EVENT DATE: 20170819
